FAERS Safety Report 5404100-9 (Version None)
Quarter: 2007Q3

REPORT INFORMATION
  Report Type: 
  Country: None (occurrence: None)
  Receive Date: 20070731
  Receipt Date: 20070718
  Transmission Date: 20080115
  Serious: Yes (Death)
  Sender: FDA-Public Use
  Company Number: GXKR2007GB06233

PATIENT
  Age: 85 Year
  Sex: Male
  Weight: 80 kg

DRUGS (4)
  1. ASPIRIN [Suspect]
     Indication: ACUTE CORONARY SYNDROME
     Dosage: 75 MG, QD, ORAL
     Route: 048
  2. AGGRASTAT [Suspect]
     Indication: ACUTE CORONARY SYNDROME
     Dosage: 500 UG, QH, INTRAVENOUS
     Route: 042
     Dates: start: 20070228, end: 20070301
  3. CLOPIDOGREL [Suspect]
     Indication: ACUTE CORONARY SYNDROME
     Dosage: 75 MG, QD, ORAL
     Route: 048
     Dates: start: 20070227
  4. ENOXAPARIN SODIUM              (ENOXAPARIN SODIUM, HEPARIN-FRACTION, S [Suspect]
     Indication: ACUTE CORONARY SYNDROME
     Dosage: 80 MG, BID, SUBCUTANEOUS
     Route: 058
     Dates: start: 20070227

REACTIONS (4)
  - CEREBRAL HAEMORRHAGE [None]
  - DEPRESSED LEVEL OF CONSCIOUSNESS [None]
  - SUBDURAL HAEMATOMA [None]
  - TROPONIN I INCREASED [None]
